FAERS Safety Report 8985834 (Version 1)
Quarter: 2012Q4

REPORT INFORMATION
  Report Type: 
  Country: US (occurrence: US)
  Receive Date: 20121226
  Receipt Date: 20121226
  Transmission Date: 20130627
  Serious: No
  Sender: FDA-Public Use
  Company Number: US-VERTEX PHARMACEUTICALS INC.-2012-025914

PATIENT
  Sex: Male
  Weight: 62 kg

DRUGS (5)
  1. VX-950 (TELAPREVIR) [Suspect]
     Indication: HEPATITIS C
     Dosage: 750 mg, tid
     Route: 048
  2. AVODART [Concomitant]
     Dosage: 0.5 mg, qd
  3. FLOMAX                             /00889901/ [Concomitant]
     Dosage: 0.4 mg, qd
  4. MULTIVITAMIN                       /00097801/ [Concomitant]
  5. FISH OIL [Suspect]

REACTIONS (5)
  - Fatigue [Unknown]
  - Anaemia [Unknown]
  - Haemorrhoids [Unknown]
  - Anorectal discomfort [Unknown]
  - Pruritus [Unknown]
